FAERS Safety Report 4389686-8 (Version None)
Quarter: 2004Q2

REPORT INFORMATION
  Report Type: 
  Country: None (occurrence: None)
  Receive Date: 20040629
  Receipt Date: 20031010
  Transmission Date: 20050107
  Serious: Yes (Other)
  Sender: FDA-Public Use
  Company Number: US-JNJFOC-20031002597

PATIENT
  Sex: Female

DRUGS (1)
  1. DURAGESIC [Suspect]
     Indication: INTENTIONAL MISUSE
     Dosage: INTRA-NASAL
     Route: 045

REACTIONS (1)
  - DRUG ABUSER [None]
